FAERS Safety Report 14294840 (Version 1)
Quarter: 2017Q4

REPORT INFORMATION
  Report Type: Spontaneous
  Country: US (occurrence: US)
  Receive Date: 20171218
  Receipt Date: 20171218
  Transmission Date: 20180321
  Serious: No
  Sender: FDA-Public Use
  Company Number: US-AUROBINDO-AUR-APL-2017-41558

PATIENT
  Sex: Male

DRUGS (2)
  1. ATOMOXETINE CAPSULES [Suspect]
     Active Substance: ATOMOXETINE
     Indication: PRODUCT USED FOR UNKNOWN INDICATION
     Dosage: 18 MG, UNK
     Route: 065
     Dates: start: 201705
  2. ATOMOXETINE CAPSULES [Suspect]
     Active Substance: ATOMOXETINE
     Dosage: 25 MG, UNK
     Route: 065
     Dates: start: 2017

REACTIONS (3)
  - Abnormal behaviour [Unknown]
  - Disturbance in attention [Unknown]
  - Product substitution issue [Unknown]
